FAERS Safety Report 26011917 (Version 3)
Quarter: 2025Q4

REPORT INFORMATION
  Report Type: Spontaneous
  Country: US (occurrence: US)
  Receive Date: 20251107
  Receipt Date: 20251217
  Transmission Date: 20260118
  Serious: Yes (Other)
  Sender: ELI LILLY AND COMPANY
  Company Number: US-ELI_LILLY_AND_COMPANY-US202510033785

PATIENT
  Age: 36 Year
  Sex: Female
  Weight: 92 kg

DRUGS (15)
  1. MOUNJARO [Suspect]
     Active Substance: TIRZEPATIDE
     Indication: Type 2 diabetes mellitus
     Dosage: 2.5 MG, WEEKLY (1/W)
     Route: 058
     Dates: start: 20251020, end: 20251028
  2. MOUNJARO [Suspect]
     Active Substance: TIRZEPATIDE
     Indication: Type 2 diabetes mellitus
     Dosage: 2.5 MG, WEEKLY (1/W)
     Route: 058
     Dates: start: 20251020, end: 20251028
  3. MOUNJARO [Suspect]
     Active Substance: TIRZEPATIDE
     Indication: Type 2 diabetes mellitus
     Dosage: 2.5 MG, WEEKLY (1/W)
     Route: 058
     Dates: start: 20251020, end: 20251028
  4. MOUNJARO [Suspect]
     Active Substance: TIRZEPATIDE
     Indication: Type 2 diabetes mellitus
     Dosage: 2.5 MG, WEEKLY (1/W)
     Route: 058
     Dates: start: 20251020, end: 20251028
  5. MOUNJARO [Suspect]
     Active Substance: TIRZEPATIDE
     Indication: Neuropathy peripheral
  6. MOUNJARO [Suspect]
     Active Substance: TIRZEPATIDE
     Indication: Neuropathy peripheral
  7. MOUNJARO [Suspect]
     Active Substance: TIRZEPATIDE
     Indication: Neuropathy peripheral
  8. MOUNJARO [Suspect]
     Active Substance: TIRZEPATIDE
     Indication: Neuropathy peripheral
  9. MOUNJARO [Suspect]
     Active Substance: TIRZEPATIDE
     Indication: Hyperglycaemia
  10. MOUNJARO [Suspect]
     Active Substance: TIRZEPATIDE
     Indication: Hyperglycaemia
  11. MOUNJARO [Suspect]
     Active Substance: TIRZEPATIDE
     Indication: Hyperglycaemia
  12. MOUNJARO [Suspect]
     Active Substance: TIRZEPATIDE
     Indication: Hyperglycaemia
  13. LANTUS [Concomitant]
     Active Substance: INSULIN GLARGINE
     Indication: Product used for unknown indication
     Dosage: 15 U, DAILY
  14. JARDIANCE [Concomitant]
     Active Substance: EMPAGLIFLOZIN
     Indication: Product used for unknown indication
     Dosage: 10 MG, DAILY
  15. METFORMIN [Concomitant]
     Active Substance: METFORMIN HYDROCHLORIDE
     Indication: Product used for unknown indication
     Dosage: 2 G, DAILY

REACTIONS (1)
  - Anaphylactic shock [Recovered/Resolved]

NARRATIVE: CASE EVENT DATE: 20251020
